FAERS Safety Report 4504195-0 (Version None)
Quarter: 2004Q4

REPORT INFORMATION
  Report Type: 
  Country: None (occurrence: None)
  Receive Date: 20041118
  Receipt Date: 20041110
  Transmission Date: 20050328
  Serious: Yes (Hospitalization, Other)
  Sender: FDA-Public Use
  Company Number: DE-JNJFOC-20041003052

PATIENT
  Age: 72 Year
  Sex: Female
  Weight: 69 kg

DRUGS (2)
  1. CAELYX [Suspect]
     Indication: OVARIAN CANCER METASTATIC
     Dosage: X 2 CYCLES
     Route: 042
  2. CARBOPLATIN [Concomitant]
     Indication: OVARIAN CANCER METASTATIC
     Dosage: X 2 CYCLES
     Route: 042

REACTIONS (1)
  - PERIPHERAL EMBOLISM [None]
